FAERS Safety Report 18518385 (Version 2)
Quarter: 2020Q4

REPORT INFORMATION
  Report Type: Spontaneous
  Country: US (occurrence: US)
  Receive Date: 20201118
  Receipt Date: 20201229
  Transmission Date: 20210114
  Serious: No
  Sender: FDA-Public Use
  Company Number: US-ASTRAZENECA-2020SF39423

PATIENT
  Sex: Female
  Weight: 108.9 kg

DRUGS (12)
  1. LISINOPRIL. [Concomitant]
     Active Substance: LISINOPRIL
     Dosage: MORNING40.0MG UNKNOWN
     Route: 065
  2. MONTELUKAST [Concomitant]
     Active Substance: MONTELUKAST SODIUM
     Dosage: 10.0MG UNKNOWN
     Route: 065
  3. VITAMIN C [Concomitant]
     Active Substance: ASCORBIC ACID
  4. FISH OIL [Concomitant]
     Active Substance: FISH OIL
     Dosage: 1000.0MG UNKNOWN
     Route: 065
  5. POTASSIUM CHLORIDE. [Concomitant]
     Active Substance: POTASSIUM CHLORIDE
  6. PANTOPRAZOLE [Concomitant]
     Active Substance: PANTOPRAZOLE
     Dosage: MORNING40.0MG UNKNOWN
     Route: 065
  7. SIMVASTATIN. [Concomitant]
     Active Substance: SIMVASTATIN
     Dosage: 40.0MG UNKNOWN
     Route: 065
  8. MELOXICAM. [Concomitant]
     Active Substance: MELOXICAM
     Dosage: MORNING15.0MG UNKNOWN
     Route: 065
  9. LORATADINE. [Concomitant]
     Active Substance: LORATADINE
     Dosage: MORNING10.0MG UNKNOWN
     Route: 065
  10. SOLIFENACIN [Concomitant]
     Active Substance: SOLIFENACIN
     Dosage: MORNING10.0MG UNKNOWN
     Route: 065
  11. BYDUREON BCISE [Suspect]
     Active Substance: EXENATIDE
     Indication: WEIGHT DECREASED
     Route: 058
     Dates: start: 20201007
  12. PROBIOTIC [Concomitant]
     Active Substance: PROBIOTICS NOS
     Dosage: MORNING

REACTIONS (5)
  - Wrong technique in device usage process [Unknown]
  - Device delivery system issue [Unknown]
  - Injection site swelling [Unknown]
  - Device leakage [Unknown]
  - Injection site bruising [Not Recovered/Not Resolved]
